FAERS Safety Report 10255380 (Version 2)
Quarter: 2014Q2

REPORT INFORMATION
  Report Type: Spontaneous
  Country: FR (occurrence: FR)
  Receive Date: 20140624
  Receipt Date: 20140624
  Transmission Date: 20141212
  Serious: Yes (Death)
  Sender: FDA-Public Use
  Company Number: FR-SA-200810018FR

PATIENT
  Age: 65 Year
  Sex: Female

DRUGS (5)
  1. TAXOTERE [Suspect]
     Indication: BREAST CANCER
     Dosage: 1 TREATMENT WITH A VIAL 80 MG AND 40MG 2 VIALS (130 MG)
     Route: 042
     Dates: start: 20070925, end: 20070925
  2. FARMORUBICINE [Suspect]
     Indication: BREAST CANCER
     Route: 042
     Dates: start: 20070809, end: 20070809
  3. ENDOXAN [Suspect]
     Indication: BREAST CANCER
     Route: 042
     Dates: start: 20070809, end: 20070809
  4. FLUOROURACILE [Suspect]
     Indication: BREAST CANCER
     Dosage: COURSE OF WITH FEC 100 1 VIALS OF 1000 MG USED (935 MG, L IN 1 DAY (S))
     Route: 042
     Dates: start: 20070809, end: 20070809
  5. LANTUS [Concomitant]
     Indication: BLOOD GLUCOSE INCREASED

REACTIONS (2)
  - Cardiogenic shock [Fatal]
  - Atrial fibrillation [Fatal]
